FAERS Safety Report 7766259-8 (Version None)
Quarter: 2011Q3

REPORT INFORMATION
  Report Type: 
  Country: None (occurrence: None)
  Receive Date: 20110921
  Receipt Date: 20110907
  Transmission Date: 20111222
  Serious: Yes (Hospitalization)
  Sender: FDA-Public Use
  Company Number: US-ALVOGEN-2011AL000049

PATIENT
  Sex: Female
  Weight: 49.9 kg

DRUGS (14)
  1. DIGOXIN [Concomitant]
     Route: 048
  2. WARFARIN SODIUM [Suspect]
     Dosage: 4 TIMES PER WEEK
     Route: 048
     Dates: start: 20110520
  3. PHENAZOPYRIDINE HCL TAB [Suspect]
     Indication: URINARY TRACT INFECTION
     Dates: start: 20110513, end: 20110513
  4. WARFARIN SODIUM [Suspect]
     Route: 048
     Dates: start: 20110520, end: 20110523
  5. SEPTRA DS [Concomitant]
     Indication: URINARY TRACT INFECTION
     Dates: start: 20110513, end: 20110513
  6. WARFARIN SODIUM [Suspect]
     Indication: ATRIAL FIBRILLATION
     Route: 048
     Dates: start: 20110421, end: 20110512
  7. WARFARIN SODIUM [Suspect]
     Route: 048
     Dates: start: 20110520
  8. ATENOLOL [Concomitant]
     Route: 048
  9. DILTIAZEM [Concomitant]
     Route: 048
  10. WARFARIN SODIUM [Suspect]
     Dates: start: 20030101, end: 20110421
  11. FUROSEMIDE [Concomitant]
     Route: 048
  12. MACRODANTIN [Suspect]
     Indication: URINARY TRACT INFECTION
     Route: 048
     Dates: start: 20110513, end: 20110514
  13. OMEPRAZOLE [Concomitant]
     Route: 048
  14. POTASSIUM CHLORIDE [Concomitant]
     Route: 048

REACTIONS (19)
  - CONTUSION [None]
  - HAEMATURIA [None]
  - INTERNATIONAL NORMALISED RATIO INCREASED [None]
  - ASTHENIA [None]
  - ABDOMINAL DISCOMFORT [None]
  - ECCHYMOSIS [None]
  - ATROPHY [None]
  - PROTHROMBIN LEVEL INCREASED [None]
  - PRESYNCOPE [None]
  - DECREASED APPETITE [None]
  - GAIT DISTURBANCE [None]
  - ARRHYTHMIA [None]
  - ANAEMIA [None]
  - HEART RATE IRREGULAR [None]
  - WEIGHT DECREASED [None]
  - NAUSEA [None]
  - DYSPEPSIA [None]
  - VOMITING [None]
  - HYPONATRAEMIA [None]
